FAERS Safety Report 4277339-6 (Version None)
Quarter: 2004Q1

REPORT INFORMATION
  Report Type: 
  Country: None (occurrence: None)
  Receive Date: 20040121
  Receipt Date: 20040121
  Transmission Date: 20041129
  Serious: No
  Sender: FDA-Public Use
  Company Number: None

PATIENT
  Age: 64 Year
  Sex: Female

DRUGS (1)
  1. MORPHINE [Suspect]
     Dosage: 2MG  ONCE  INTRAVENOUS
     Route: 042
     Dates: start: 20030430, end: 20030430

REACTIONS (3)
  - COMA [None]
  - HYPOTENSION [None]
  - HYPOVENTILATION [None]
